FAERS Safety Report 5282892-X (Version None)
Quarter: 2007Q2

REPORT INFORMATION
  Report Type: 
  Country: None (occurrence: None)
  Receive Date: 20070402
  Receipt Date: 20070319
  Transmission Date: 20071010
  Serious: Yes (Other)
  Sender: FDA-Public Use
  Company Number: PHBS2007GR04922

PATIENT
  Age: 33 Year
  Sex: Male

DRUGS (2)
  1. CLOZAPINE [Suspect]
     Indication: SCHIZOPHRENIA
     Dosage: 600 MG/D
     Route: 065
  2. AMISULPRIDE [Suspect]
     Dosage: 200 MG/D
     Route: 065

REACTIONS (4)
  - CATECHOLAMINES URINE INCREASED [None]
  - HYPERTENSION [None]
  - TACHYCARDIA [None]
  - VANILLYL MANDELIC ACID URINE INCREASED [None]
